FAERS Safety Report 17746248 (Version 4)
Quarter: 2020Q3

REPORT INFORMATION
  Report Type: Report from Study
  Country: US (occurrence: US)
  Receive Date: 20200505
  Receipt Date: 20200817
  Transmission Date: 20201102
  Serious: No
  Sender: FDA-Public Use
  Company Number: NVSC2020US121517

PATIENT
  Sex: Male

DRUGS (3)
  1. ENTRESTO [Suspect]
     Active Substance: SACUBITRIL\VALSARTAN
     Indication: CARDIAC FAILURE
     Dosage: 24 MG, BID
     Route: 048
  2. ENTRESTO [Suspect]
     Active Substance: SACUBITRIL\VALSARTAN
     Indication: CARDIAC FAILURE
     Dosage: 1 DF, ONCE2SDO (DOSE REPORTED : 24 MG)
     Route: 048
  3. ENTRESTO [Suspect]
     Active Substance: SACUBITRIL\VALSARTAN
     Dosage: 24/26 MG, BID (DOSE REDUCED FROM 49/5MG DOSE)
     Route: 048

REACTIONS (9)
  - Wrong technique in product usage process [Unknown]
  - Cardiac procedure complication [Unknown]
  - Hypotension [Recovering/Resolving]
  - Incorrect dose administered [Unknown]
  - Heart rate decreased [Unknown]
  - Chest pain [Unknown]
  - Fluid retention [Unknown]
  - Dizziness [Unknown]
  - Drug ineffective [Unknown]
